FAERS Safety Report 7240509-9 (Version None)
Quarter: 2011Q1

REPORT INFORMATION
  Report Type: 
  Country: None (occurrence: None)
  Receive Date: 20110124
  Receipt Date: 20110114
  Transmission Date: 20110831
  Serious: Yes (Other)
  Sender: FDA-Public Use
  Company Number: US-PFIZER INC-HQWYE125804FEB05

PATIENT
  Sex: Female
  Weight: 54.4 kg

DRUGS (5)
  1. SYNTHROID [Concomitant]
     Dosage: UNK
     Route: 048
     Dates: start: 19850101
  2. ATROVENT [Concomitant]
     Dosage: UNK
     Route: 055
     Dates: start: 19980101, end: 20050101
  3. FOSAMAX [Concomitant]
     Dosage: UNK
     Route: 048
     Dates: start: 20041001
  4. PREMPRO [Suspect]
     Indication: HORMONE REPLACEMENT THERAPY
     Dosage: UNK
     Route: 048
     Dates: start: 19990101, end: 20040101
  5. FLONASE [Concomitant]
     Dosage: UNK
     Route: 055
     Dates: start: 19980101

REACTIONS (1)
  - BREAST CANCER FEMALE [None]
